FAERS Safety Report 21435240 (Version 1)
Quarter: 2022Q4

REPORT INFORMATION
  Report Type: Spontaneous
  Country: ES (occurrence: ES)
  Receive Date: 20221010
  Receipt Date: 20221010
  Transmission Date: 20230113
  Serious: Yes (Life-Threatening, Hospitalization)
  Sender: FDA-Public Use
  Company Number: None

PATIENT
  Age: 78 Year
  Sex: Male

DRUGS (5)
  1. PRAVASTATIN SODIUM [Suspect]
     Active Substance: PRAVASTATIN SODIUM
     Indication: Hyperlipidaemia
     Dosage: FREQUENCY TIME : 1 DAY, UNIT DOSE: 20 MG, THERAPY END DATE: NASK, PRAVASTATIN SODIUM (7192SO)
     Route: 065
     Dates: start: 2012
  2. MIRTAZAPINE [Suspect]
     Active Substance: MIRTAZAPINE
     Indication: Depression
     Dosage: FREQUENCY TIME : 1 DAY, UNIT DOSE: 15 MG, THERAPY END DATE: NASK, MIRTAZAPINE (2704A)
     Route: 065
     Dates: start: 2012
  3. ALLOPURINOL [Suspect]
     Active Substance: ALLOPURINOL
     Indication: Hyperuricaemia
     Dosage: FREQUENCY TIME : 1 DAY, UNIT DOSE: 300 MG, THERAPY END DATE: NASK, ALLOPURINOL (318A)
     Route: 065
     Dates: start: 2012
  4. FLUOXETINE [Suspect]
     Active Substance: FLUOXETINE HYDROCHLORIDE
     Indication: Depression
     Dosage: FREQUENCY TIME : 1 DAY, UNIT DOSE: 20 MG, THERAPY END DATE: NASK, FLUOXETINE (2331A)
     Route: 065
     Dates: start: 2012
  5. ACENOCOUMAROL [Suspect]
     Active Substance: ACENOCOUMAROL
     Indication: Cardiac valve prosthesis user
     Dosage: DURATION: 4093 DAYS, ACENOCOUMAROL (220A)
     Route: 065
     Dates: start: 20110317, end: 20220531

REACTIONS (1)
  - Chest wall haematoma [Recovered/Resolved]

NARRATIVE: CASE EVENT DATE: 20220531
